FAERS Safety Report 5693311-3 (Version None)
Quarter: 2008Q2

REPORT INFORMATION
  Report Type: 
  Country: None (occurrence: None)
  Receive Date: 20080403
  Receipt Date: 20080319
  Transmission Date: 20081010
  Serious: Yes (Hospitalization)
  Sender: FDA-Public Use
  Company Number: US-BAYER-200811116BCC

PATIENT
  Age: 35 Year
  Sex: Male
  Weight: 98 kg

DRUGS (3)
  1. BRONKAID DUAL ACTION CAPLETS [Suspect]
     Indication: ASTHMA
     Route: 048
     Dates: start: 20070701
  2. THEOPHYLLINE [Concomitant]
  3. ALBUTEROL [Concomitant]

REACTIONS (1)
  - TREMOR [None]
